FAERS Safety Report 8895795 (Version 2)
Quarter: 2013Q1

REPORT INFORMATION
  Report Type: Spontaneous
  Country: US (occurrence: US)
  Receive Date: 20121107
  Receipt Date: 20130124
  Transmission Date: 20140127
  Serious: No
  Sender: FDA-Public Use
  Company Number: US-ASTRAZENECA-2012SE82125

PATIENT
  Age: 53 Year
  Sex: Female

DRUGS (4)
  1. SEROQUEL XR [Suspect]
     Indication: MAJOR DEPRESSION
     Route: 048
     Dates: start: 20111003
  2. ATIVAN [Concomitant]
  3. ZOLOFT [Concomitant]
     Indication: DEPRESSION
  4. DIOVAN [Concomitant]
     Indication: ANXIETY

REACTIONS (5)
  - Posture abnormal [Recovered/Resolved]
  - Headache [Recovered/Resolved]
  - Pain [Recovered/Resolved]
  - Musculoskeletal stiffness [Recovered/Resolved]
  - Muscle twitching [Unknown]
